FAERS Safety Report 10194937 (Version 1)
Quarter: 2014Q2

REPORT INFORMATION
  Report Type: Spontaneous
  Country: FR (occurrence: FR)
  Receive Date: 20140526
  Receipt Date: 20140526
  Transmission Date: 20141212
  Serious: Yes (Hospitalization, Other)
  Sender: FDA-Public Use
  Company Number: FR-AMGEN-FRASP2014037554

PATIENT
  Age: 65 Year
  Sex: Male
  Weight: 80 kg

DRUGS (1)
  1. VECTIBIX [Suspect]
     Indication: COLORECTAL CANCER
     Dosage: UNK
     Route: 065

REACTIONS (1)
  - Hypersensitivity [Recovered/Resolved]
